FAERS Safety Report 14404992 (Version 1)
Quarter: 2018Q1

REPORT INFORMATION
  Report Type: Report from Study
  Country: None (occurrence: IL)
  Receive Date: 20180118
  Receipt Date: 20180118
  Transmission Date: 20180509
  Serious: Yes (Hospitalization)
  Sender: FDA-Public Use
  Company Number: IL-ABBVIE-18K-082-2222550-00

PATIENT
  Age: 54 Year
  Sex: Female

DRUGS (2)
  1. HUMIRA [Suspect]
     Active Substance: ADALIMUMAB
     Indication: PRODUCT USED FOR UNKNOWN INDICATION
     Dosage: FORM OF ADMINISTRATION : SOLUTION FOR INJECTION IN PRE-FILLED PEN OR PRE-FILLED SYRINGE
     Route: 058
  2. HUMIRA [Suspect]
     Active Substance: ADALIMUMAB
     Dosage: FORM OF ADMINISTRATION : SOLUTION FOR INJECTION IN PRE-FILLED PEN OR PRE-FILLED SYRINGE
     Route: 058
     Dates: end: 2014

REACTIONS (3)
  - Gastrointestinal obstruction [Unknown]
  - Abdominal adhesions [Unknown]
  - Gastrointestinal inflammation [Unknown]
